FAERS Safety Report 8692250 (Version 4)
Quarter: 2012Q4

REPORT INFORMATION
  Report Type: 
  Country: US (occurrence: US)
  Receive Date: 20120730
  Receipt Date: 20121129
  Transmission Date: 20130627
  Serious: Yes (Hospitalization)
  Sender: FDA-Public Use
  Company Number: US-ACTELION-A-NJ2012-68325

PATIENT
  Age: 67 Year
  Sex: Female

DRUGS (3)
  1. VELETRI [Suspect]
     Indication: PULMONARY ARTERIAL HYPERTENSION
     Dosage: 13 ng/kg, per min
     Route: 041
     Dates: start: 20120607
  2. REVATIO [Suspect]
  3. LETAIRIS [Concomitant]

REACTIONS (11)
  - Transplant [Recovered/Resolved]
  - Pulmonary oedema [Not Recovered/Not Resolved]
  - Dyspnoea [Not Recovered/Not Resolved]
  - Sepsis [Unknown]
  - Nausea [Recovering/Resolving]
  - Asthenia [Unknown]
  - Pleural effusion [Unknown]
  - Deafness [Recovered/Resolved]
  - Pulmonary arterial hypertension [Recovering/Resolving]
  - Device leakage [Recovered/Resolved]
  - Lung transplant [None]
